FAERS Safety Report 19316582 (Version 5)
Quarter: 2021Q2

REPORT INFORMATION
  Report Type: Spontaneous
  Country: US (occurrence: US)
  Receive Date: 20210527
  Receipt Date: 20210617
  Transmission Date: 20210717
  Serious: Yes (Hospitalization)
  Sender: FDA-Public Use
  Company Number: US-UNITED THERAPEUTICS-UNT-2021-009540

PATIENT
  Age: 80 Year
  Sex: Female
  Weight: 90.7 kg

DRUGS (2)
  1. REMODULIN [Suspect]
     Active Substance: TREPROSTINIL
     Dosage: 0.007 ?G/KG, CONTINUING
     Route: 058
  2. REMODULIN [Suspect]
     Active Substance: TREPROSTINIL
     Indication: PULMONARY ARTERIAL HYPERTENSION
     Dosage: UNK, CONTINUING
     Route: 058
     Dates: start: 20210409

REACTIONS (11)
  - Blood pressure increased [Recovering/Resolving]
  - Retching [Recovering/Resolving]
  - Infusion site discharge [Unknown]
  - Infusion site haemorrhage [Unknown]
  - Flushing [Recovering/Resolving]
  - Infusion site infection [Unknown]
  - Diarrhoea [Recovered/Resolved]
  - Erythema [Recovering/Resolving]
  - Fatigue [Recovering/Resolving]
  - Infusion site pain [Unknown]
  - Nausea [Recovering/Resolving]

NARRATIVE: CASE EVENT DATE: 202105
